FAERS Safety Report 5270305-3 (Version None)
Quarter: 2007Q1

REPORT INFORMATION
  Report Type: 
  Country: None (occurrence: None)
  Receive Date: 20070320
  Receipt Date: 20070308
  Transmission Date: 20070707
  Serious: Yes (Death, Hospitalization, Other)
  Sender: FDA-Public Use
  Company Number: FR-PFIZER INC-2006055573

PATIENT
  Sex: Male
  Weight: 100 kg

DRUGS (13)
  1. SU-011,248 [Suspect]
     Indication: RENAL CELL CARCINOMA STAGE UNSPECIFIED
     Route: 048
     Dates: start: 20060313, end: 20060409
  2. SYMBICORT TURBOHALER [Concomitant]
     Route: 048
  3. AUGMENTIN '125' [Concomitant]
     Route: 048
     Dates: start: 20060413, end: 20060428
  4. DIGOXIN [Concomitant]
     Route: 048
  5. ALLOPURINOL [Concomitant]
     Route: 048
  6. DILTIAZEM HYDROCHLORIDE [Concomitant]
     Dosage: FREQ:U
     Route: 048
  7. TAHOR [Concomitant]
     Route: 048
  8. FOZITEC [Concomitant]
     Route: 048
  9. LASIX [Concomitant]
     Route: 048
  10. DIFFU K [Concomitant]
     Route: 048
  11. LEVOTHYROXINE SODIUM [Concomitant]
     Route: 048
  12. MEDROL [Concomitant]
     Route: 048
  13. PREVISCAN [Concomitant]
     Route: 048
     Dates: start: 20040406, end: 20060308

REACTIONS (4)
  - DEPRESSED LEVEL OF CONSCIOUSNESS [None]
  - NEUTROPENIA [None]
  - PNEUMONIA [None]
  - THROMBOCYTOPENIA [None]
